FAERS Safety Report 24898212 (Version 4)
Quarter: 2025Q2

REPORT INFORMATION
  Report Type: Spontaneous
  Country: US (occurrence: US)
  Receive Date: 20250129
  Receipt Date: 20250401
  Transmission Date: 20250717
  Serious: Yes (Hospitalization, Other)
  Sender: ABBVIE
  Company Number: US-ABBVIE-6105301

PATIENT
  Age: 76 Year
  Sex: Female
  Weight: 101 kg

DRUGS (12)
  1. LINZESS [Suspect]
     Active Substance: LINACLOTIDE
     Indication: Inflammatory bowel disease
     Dosage: FORM STRENGTH: 145 MILLIGRAM
     Route: 048
     Dates: start: 20241201, end: 20250125
  2. LINZESS [Suspect]
     Active Substance: LINACLOTIDE
     Indication: Inflammatory bowel disease
     Dosage: FORM STRENGTH: 290 MILLIGRAM
     Route: 048
     Dates: start: 20250125
  3. LINZESS [Suspect]
     Active Substance: LINACLOTIDE
     Indication: Inflammatory bowel disease
     Dosage: FORM STRENGTH: 290 MILLIGRAM
     Route: 048
     Dates: start: 2021, end: 2021
  4. LINZESS [Suspect]
     Active Substance: LINACLOTIDE
     Indication: Inflammatory bowel disease
     Route: 048
     Dates: start: 20240511, end: 20240711
  5. PROPRANOLOL [Concomitant]
     Active Substance: PROPRANOLOL HYDROCHLORIDE
     Indication: Supraventricular tachycardia
     Route: 048
  6. B 12 [Concomitant]
     Indication: Vitamin supplementation
  7. REPATHA [Concomitant]
     Active Substance: EVOLOCUMAB
     Indication: Blood cholesterol
  8. FOLIC ACID [Concomitant]
     Active Substance: FOLIC ACID
     Indication: Vitamin supplementation
  9. CALCIUM [Concomitant]
     Active Substance: CALCIUM
     Indication: Osteoporosis
     Route: 048
  10. VITAMIN D [Concomitant]
     Active Substance: VITAMIN D NOS
     Indication: Vitamin supplementation
     Dosage: 7000 UNITS
     Route: 048
  11. PANTOPRAZOLE [Concomitant]
     Active Substance: PANTOPRAZOLE
     Indication: Product used for unknown indication
     Route: 048
     Dates: start: 20250120
  12. SYNTHROID [Concomitant]
     Active Substance: LEVOTHYROXINE SODIUM
     Indication: Product used for unknown indication
     Dosage: 37.5 MCG
     Route: 048

REACTIONS (9)
  - Small intestinal obstruction [Recovered/Resolved]
  - Abdominal pain [Recovered/Resolved]
  - Drug ineffective [Unknown]
  - Small intestinal resection [Unknown]
  - Abdominal distension [Recovered/Resolved]
  - White blood cell count increased [Recovered/Resolved]
  - Gastrointestinal motility disorder [Recovered/Resolved]
  - Flatulence [Recovering/Resolving]
  - Diarrhoea [Unknown]

NARRATIVE: CASE EVENT DATE: 20241210
